FAERS Safety Report 5628441-5 (Version None)
Quarter: 2008Q1

REPORT INFORMATION
  Report Type: 
  Country: None (occurrence: None)
  Receive Date: 20080215
  Receipt Date: 20080208
  Transmission Date: 20080703
  Serious: Yes (Other)
  Sender: FDA-Public Use
  Company Number: US-PFIZER INC-2007106042

PATIENT
  Sex: Male
  Weight: 101 kg

DRUGS (7)
  1. GENOTROPIN [Suspect]
     Indication: GROWTH HORMONE DEFICIENCY
  2. GENOTROPIN [Suspect]
     Dates: start: 20070101, end: 20071213
  3. ALBUTEROL [Concomitant]
  4. CLONIDINE [Concomitant]
  5. CONCERTA [Concomitant]
  6. GEODON [Concomitant]
  7. TESTOSTERONE [Concomitant]

REACTIONS (2)
  - BENIGN INTRACRANIAL HYPERTENSION [None]
  - OPTIC NERVE SHEATH HAEMORRHAGE [None]
